FAERS Safety Report 12532423 (Version 1)
Quarter: 2016Q3

REPORT INFORMATION
  Report Type: Report from Study
  Country: US (occurrence: US)
  Receive Date: 20160706
  Receipt Date: 20160706
  Transmission Date: 20161109
  Serious: Yes (Hospitalization)
  Sender: FDA-Public Use
  Company Number: US-ACTELION-A-US2016-138622

PATIENT
  Age: 81 Year
  Sex: Female

DRUGS (17)
  1. ACETAMINOPHEN AND CODEINE [Concomitant]
     Active Substance: ACETAMINOPHEN\CODEINE PHOSPHATE
  2. SPIRONOLACTONE. [Concomitant]
     Active Substance: SPIRONOLACTONE
  3. FENOFIBRATE. [Concomitant]
     Active Substance: FENOFIBRATE
  4. CEPHALEXIN. [Concomitant]
     Active Substance: CEPHALEXIN
  5. TRACLEER [Suspect]
     Active Substance: BOSENTAN
     Indication: PULMONARY ARTERIAL HYPERTENSION
     Dosage: 125 MG, UNK
     Route: 048
     Dates: start: 20160531
  6. LISINOPRIL AND HYDROCHLOROTHIAZIDE [Concomitant]
     Active Substance: HYDROCHLOROTHIAZIDE\LISINOPRIL
  7. CLONIDINE. [Concomitant]
     Active Substance: CLONIDINE
  8. METRONIDAZOLE. [Concomitant]
     Active Substance: METRONIDAZOLE
  9. DIGOXIN. [Concomitant]
     Active Substance: DIGOXIN
  10. AMLODIPINE [Concomitant]
     Active Substance: AMLODIPINE BESYLATE
  11. CIPROFLOXACIN. [Concomitant]
     Active Substance: CIPROFLOXACIN
  12. NOVOLOG [Concomitant]
     Active Substance: INSULIN ASPART
  13. CARVEDILOL. [Concomitant]
     Active Substance: CARVEDILOL
  14. ZOLPIDEM [Concomitant]
     Active Substance: ZOLPIDEM\ZOLPIDEM TARTRATE
  15. FUROSEMIDE. [Concomitant]
     Active Substance: FUROSEMIDE
  16. LEVEMIR [Concomitant]
     Active Substance: INSULIN DETEMIR
  17. CLOBETASOL [Concomitant]
     Active Substance: CLOBETASOL

REACTIONS (3)
  - Dialysis [Recovering/Resolving]
  - Haematemesis [Recovering/Resolving]
  - Seizure [Recovering/Resolving]
